FAERS Safety Report 4655735-2 (Version None)
Quarter: 2005Q2

REPORT INFORMATION
  Report Type: 
  Country: None (occurrence: None)
  Receive Date: 20050507
  Receipt Date: 20050428
  Transmission Date: 20051028
  Serious: Yes (Other)
  Sender: FDA-Public Use
  Company Number: RU-MERCK-0504RUS00005

PATIENT
  Age: 45 Year
  Sex: Female

DRUGS (2)
  1. ZETIA [Suspect]
     Indication: TYPE IIA HYPERLIPIDAEMIA
     Route: 065
     Dates: start: 20040101
  2. DESOGESTREL AND ETHINYL ESTRADIOL [Suspect]
     Indication: CONTRACEPTION
     Route: 065
     Dates: start: 20030101

REACTIONS (2)
  - DRUG INTERACTION [None]
  - MENSTRUATION IRREGULAR [None]
